FAERS Safety Report 5325620-1 (Version None)
Quarter: 2007Q2

REPORT INFORMATION
  Report Type: 
  Country: None (occurrence: None)
  Receive Date: 20070515
  Receipt Date: 20070504
  Transmission Date: 20071010
  Serious: Yes (Hospitalization)
  Sender: FDA-Public Use
  Company Number: AT-ELI_LILLY_AND_COMPANY-AT200705001762

PATIENT
  Age: 33 Year
  Sex: Female
  Weight: 85 kg

DRUGS (3)
  1. CYMBALTA [Suspect]
     Indication: PAIN
     Dosage: 90 MG, DAILY (1/D)
     Dates: start: 20061001
  2. SEROQUEL [Concomitant]
     Indication: ANXIETY
     Dosage: 100 MG, UNK
     Dates: start: 20061215
  3. XANOR [Concomitant]
     Indication: RESTLESSNESS
     Dosage: 1 MG, UNK
     Dates: start: 20061001, end: 20070101

REACTIONS (2)
  - OVARIAN CYST [None]
  - OVARIAN CYST RUPTURED [None]
